FAERS Safety Report 5281446-9 (Version None)
Quarter: 2007Q1

REPORT INFORMATION
  Report Type: 
  Country: None (occurrence: None)
  Receive Date: 20070323
  Receipt Date: 20070323
  Transmission Date: 20070707
  Serious: Yes (Other)
  Sender: FDA-Public Use
  Company Number: None

PATIENT
  Age: 39 Year
  Sex: Female
  Weight: 90.7194 kg

DRUGS (1)
  1. TAMIFLU [Suspect]
     Dates: start: 20070301, end: 20070305

REACTIONS (2)
  - ANXIETY [None]
  - CONDITION AGGRAVATED [None]
